FAERS Safety Report 18367380 (Version 1)
Quarter: 2020Q4

REPORT INFORMATION
  Report Type: Spontaneous
  Country: US (occurrence: US)
  Receive Date: 20201009
  Receipt Date: 20201009
  Transmission Date: 20210114
  Serious: No
  Sender: FDA-Public Use
  Company Number: US-009507513-2009USA004841

PATIENT
  Sex: Male

DRUGS (2)
  1. KEYTRUDA [Suspect]
     Active Substance: PEMBROLIZUMAB
     Indication: METASTASES TO LYMPH NODES
  2. KEYTRUDA [Suspect]
     Active Substance: PEMBROLIZUMAB
     Indication: BLADDER CANCER
     Dosage: 200MG EVERY 3 WEEKS

REACTIONS (8)
  - Neck pain [Not Recovered/Not Resolved]
  - Pyrexia [Unknown]
  - Cervical radiculopathy [Recovered/Resolved]
  - Torticollis [Not Recovered/Not Resolved]
  - Product prescribing issue [Unknown]
  - Muscle disorder [Unknown]
  - Headache [Unknown]
  - Drug effective for unapproved indication [Unknown]
